FAERS Safety Report 4288913-5 (Version None)
Quarter: 2004Q1

REPORT INFORMATION
  Report Type: 
  Country: None (occurrence: None)
  Receive Date: 20040206
  Receipt Date: 20040123
  Transmission Date: 20041129
  Serious: Yes (Hospitalization)
  Sender: FDA-Public Use
  Company Number: 2004S1000022

PATIENT
  Age: 78 Year
  Sex: Female
  Weight: 100 kg

DRUGS (1)
  1. CUBICIN [Suspect]
     Dosage: 400 MG QD IV
     Route: 042
     Dates: start: 20031101, end: 20031222

REACTIONS (14)
  - AORTIC VALVE DISEASE [None]
  - BACTERAEMIA [None]
  - BLOOD CREATININE INCREASED [None]
  - BRAIN OEDEMA [None]
  - CEREBRAL HAEMORRHAGE [None]
  - CEREBROVASCULAR ACCIDENT [None]
  - CONJUNCTIVAL HAEMORRHAGE [None]
  - CREATININE RENAL CLEARANCE DECREASED [None]
  - DEPRESSED LEVEL OF CONSCIOUSNESS [None]
  - DYSPNOEA [None]
  - EMBOLIC STROKE [None]
  - ENDOCARDITIS [None]
  - MITRAL VALVE DISEASE [None]
  - PYREXIA [None]
